FAERS Safety Report 6967826-1 (Version None)
Quarter: 2010Q3

REPORT INFORMATION
  Report Type: 
  Country: None (occurrence: None)
  Receive Date: 20100907
  Receipt Date: 20100423
  Transmission Date: 20110219
  Serious: No
  Sender: FDA-Public Use
  Company Number: A0801909A

PATIENT
  Sex: Female

DRUGS (7)
  1. ROPINIROLE [Suspect]
     Indication: RESTLESS LEGS SYNDROME
     Dosage: 4MG FOUR TIMES PER DAY
     Route: 048
     Dates: start: 20080101
  2. ACCOLATE [Concomitant]
  3. FORADIL [Concomitant]
  4. PROAIR HFA [Concomitant]
  5. VENTOLIN [Concomitant]
  6. EXCEDRIN (MIGRAINE) [Concomitant]
  7. BAYER SELECT MAXIMUM STRENGTH BACKACHE [Concomitant]

REACTIONS (2)
  - DYSPEPSIA [None]
  - WEIGHT INCREASED [None]
